FAERS Safety Report 5876742-8 (Version None)
Quarter: 2008Q3

REPORT INFORMATION
  Report Type: 
  Country: None (occurrence: None)
  Receive Date: 20080910
  Receipt Date: 20070716
  Transmission Date: 20090109
  Serious: Yes (Death, Other)
  Sender: FDA-Public Use
  Company Number: US-MERCK-0711USA03104

PATIENT
  Age: 56 Year
  Sex: Male
  Weight: 76 kg

DRUGS (13)
  1. ZOLINZA [Suspect]
     Indication: MYCOSIS FUNGOIDES
     Route: 048
     Dates: start: 20070701, end: 20070801
  2. ZOLINZA [Suspect]
     Route: 048
     Dates: start: 20070601
  3. GEMCITABINE HYDROCHLORIDE [Concomitant]
     Route: 041
     Dates: start: 20070917
  4. ADENOSINE [Concomitant]
     Route: 041
     Dates: start: 20070904
  5. FUROSEMIDE [Concomitant]
     Route: 048
     Dates: start: 20070831
  6. FOLIC ACID [Concomitant]
     Route: 048
     Dates: start: 20070827
  7. VORICONAZOLE [Concomitant]
     Route: 048
     Dates: start: 20070815
  8. FLEBOGAMMA [Concomitant]
     Route: 041
     Dates: start: 20070803
  9. ACETAMINOPHEN [Concomitant]
     Route: 048
     Dates: start: 20070803
  10. DIPHENHYDRAMINE HYDROCHLORIDE [Concomitant]
     Route: 041
     Dates: start: 20070803
  11. FOLIC ACID [Concomitant]
     Route: 048
     Dates: start: 20070727
  12. VORICONAZOLE [Concomitant]
     Route: 048
     Dates: start: 20070713
  13. CYCLOSPORINE [Concomitant]
     Route: 065

REACTIONS (3)
  - CARDIO-RESPIRATORY ARREST [None]
  - DRUG INTERACTION [None]
  - DRUG LEVEL INCREASED [None]
